FAERS Safety Report 4747401-X (Version None)
Quarter: 2005Q3

REPORT INFORMATION
  Report Type: 
  Country: None (occurrence: None)
  Receive Date: 20050815
  Receipt Date: 20050503
  Transmission Date: 20060218
  Serious: No
  Sender: FDA-Public Use
  Company Number: USA050597085

PATIENT
  Age: 71 Year
  Sex: Male

DRUGS (3)
  1. CIALIS [Suspect]
     Indication: ERECTILE DYSFUNCTION
     Dosage: 20 MG
     Dates: start: 20050427
  2. ZOLOFT [Concomitant]
  3. ZETIA [Concomitant]

REACTIONS (2)
  - BACK PAIN [None]
  - MYALGIA [None]
